FAERS Safety Report 9801961 (Version 3)
Quarter: 2014Q2

REPORT INFORMATION
  Report Type: Spontaneous
  Country: FR (occurrence: FR)
  Receive Date: 20140107
  Receipt Date: 20140404
  Transmission Date: 20141212
  Serious: Yes (Death, Other)
  Sender: FDA-Public Use
  Company Number: CHNY2013FR002855

PATIENT
  Age: 3 Month
  Sex: Female
  Weight: 4 kg

DRUGS (12)
  1. SCOPODERM TTS [Suspect]
     Indication: PALLIATIVE CARE
     Dosage: .25 DF, CHANGED EVERY 72 HOURS
     Route: 003
     Dates: start: 20131206
  2. SCOPODERM TTS [Suspect]
     Indication: WRONG TECHNIQUE IN DRUG USAGE PROCESS
  3. SCOPODERM TTS [Suspect]
     Indication: BRONCHIAL OBSTRUCTION
  4. SCOPODERM TTS [Suspect]
     Indication: SECRETION DISCHARGE
  5. SCOPODERM TTS [Suspect]
     Indication: OFF LABEL USE
  6. UVESTEROL D [Concomitant]
  7. VITAMINE K [Concomitant]
  8. GARDENAL//PHENOBARBITAL [Concomitant]
  9. DIHYDAN [Concomitant]
  10. SABRIL [Concomitant]
  11. KEPPRA [Concomitant]
  12. LASILIX [Concomitant]

REACTIONS (4)
  - Death [Fatal]
  - Urinary retention [Unknown]
  - Off label use [Unknown]
  - Wrong technique in drug usage process [Unknown]
